FAERS Safety Report 13130106 (Version 2)
Quarter: 2017Q2

REPORT INFORMATION
  Report Type: Spontaneous
  Country: US (occurrence: US)
  Receive Date: 20170119
  Receipt Date: 20170522
  Transmission Date: 20170830
  Serious: Yes (Hospitalization, Other)
  Sender: FDA-Public Use
  Company Number: US-TEVA-729906USA

PATIENT
  Sex: Female
  Weight: 77.11 kg

DRUGS (4)
  1. WARFARIN [Suspect]
     Active Substance: WARFARIN
     Indication: THROMBOSIS PROPHYLAXIS
     Dosage: UNKNOWN
     Route: 065
  2. WARFARIN [Suspect]
     Active Substance: WARFARIN
     Dosage: INCREASED DOSE TO 18 MG
     Route: 065
  3. LYRICA [Suspect]
     Active Substance: PREGABALIN
     Indication: FIBROMYALGIA
  4. LYRICA [Suspect]
     Active Substance: PREGABALIN
     Indication: PAIN IN EXTREMITY
     Dates: start: 201412

REACTIONS (16)
  - Arthropathy [Not Recovered/Not Resolved]
  - Blindness [Not Recovered/Not Resolved]
  - Abasia [Not Recovered/Not Resolved]
  - International normalised ratio decreased [Unknown]
  - Cerebral disorder [Not Recovered/Not Resolved]
  - Neoplasm [Unknown]
  - Weight decreased [Unknown]
  - Hiatus hernia [Unknown]
  - Pain [Unknown]
  - Feeding disorder [Unknown]
  - Emotional distress [Unknown]
  - Rheumatoid arthritis [Unknown]
  - International normalised ratio increased [Unknown]
  - Malaise [Unknown]
  - Thrombosis [Unknown]
  - Fatigue [Unknown]

NARRATIVE: CASE EVENT DATE: 2015
